FAERS Safety Report 8164644-6 (Version None)
Quarter: 2012Q1

REPORT INFORMATION
  Report Type: 
  Country: None (occurrence: None)
  Receive Date: 20120227
  Receipt Date: 20120217
  Transmission Date: 20120608
  Serious: Yes (Other)
  Sender: FDA-Public Use
  Company Number: US-BIOGENIDEC-2012BI006588

PATIENT
  Age: 31 Year
  Sex: Female

DRUGS (1)
  1. TYSABRI [Suspect]
     Indication: MULTIPLE SCLEROSIS
     Route: 042
     Dates: start: 20110914

REACTIONS (4)
  - DEEP VEIN THROMBOSIS [None]
  - FOREIGN BODY [None]
  - ARTHRALGIA [None]
  - CARTILAGE ATROPHY [None]
